FAERS Safety Report 20009637 (Version 1)
Quarter: 2021Q4

REPORT INFORMATION
  Report Type: Spontaneous
  Country: US (occurrence: US)
  Receive Date: 20211028
  Receipt Date: 20211028
  Transmission Date: 20220303
  Serious: No
  Sender: FDA-Public Use
  Company Number: None

PATIENT
  Age: 62 Year
  Sex: Male

DRUGS (1)
  1. TALTZ [Suspect]
     Active Substance: IXEKIZUMAB
     Indication: Psoriasis
     Dosage: ?          OTHER DOSE:80MG (1 PEN);????OTHER FREQUENCY : UD
     Route: 058
     Dates: start: 202107

REACTIONS (1)
  - COVID-19 [None]
